FAERS Safety Report 5688683-X (Version None)
Quarter: 2008Q1

REPORT INFORMATION
  Report Type: 
  Country: None (occurrence: None)
  Receive Date: 20080331
  Receipt Date: 20080319
  Transmission Date: 20080703
  Serious: Yes (Other)
  Sender: FDA-Public Use
  Company Number: AU-MERCK-0803AUS00168

PATIENT
  Age: 69 Year
  Sex: Female
  Weight: 55 kg

DRUGS (2)
  1. FOSAMAX [Suspect]
     Indication: OSTEOPOROSIS
     Route: 048
     Dates: start: 20061201, end: 20080201
  2. CALCIUM CARBONATE [Concomitant]
     Indication: MINERAL SUPPLEMENTATION
     Route: 065

REACTIONS (4)
  - GASTROOESOPHAGEAL REFLUX DISEASE [None]
  - OESOPHAGEAL PAIN [None]
  - THYROID DISORDER [None]
  - TONGUE ULCERATION [None]
